FAERS Safety Report 5706299-3 (Version None)
Quarter: 2008Q2

REPORT INFORMATION
  Report Type: 
  Country: None (occurrence: None)
  Receive Date: 20080409
  Receipt Date: 20070331
  Transmission Date: 20081010
  Serious: Yes (Life-Threatening, Hospitalization)
  Sender: FDA-Public Use
  Company Number: 113

PATIENT
  Sex: Male
  Weight: 122.4712 kg

DRUGS (20)
  1. FAZACLO ODT [Suspect]
     Indication: SCHIZOAFFECTIVE DISORDER
     Dosage: 100 MG PO DAILY
     Route: 048
     Dates: start: 20060121, end: 20070329
  2. NASACORT [Concomitant]
  3. ADVAIR MDI [Concomitant]
  4. NODOZ [Concomitant]
  5. ASPIRIN [Concomitant]
  6. ALLEGRA [Concomitant]
  7. PRILOSEC [Concomitant]
  8. LOPID [Concomitant]
  9. ATIVAN [Concomitant]
  10. GEODON [Concomitant]
  11. NARDIL [Concomitant]
  12. FLOVENT [Concomitant]
  13. COLACE [Concomitant]
  14. GLUCOPHAGE [Concomitant]
  15. DEPAKOTE ER [Concomitant]
  16. NIASPAN [Concomitant]
  17. ZYPREXA [Concomitant]
  18. SENOKOT [Concomitant]
  19. TRAZODONE HCL [Concomitant]
  20. LITHIUM CARBONATE [Concomitant]

REACTIONS (1)
  - AGRANULOCYTOSIS [None]
